FAERS Safety Report 6564863-6 (Version None)
Quarter: 2010Q1

REPORT INFORMATION
  Report Type: 
  Country: None (occurrence: None)
  Receive Date: 20100201
  Receipt Date: 20100121
  Transmission Date: 20100710
  Serious: Yes (Other)
  Sender: FDA-Public Use
  Company Number: US-PFIZER INC-2010009222

PATIENT
  Sex: Male
  Weight: 113.39 kg

DRUGS (1)
  1. NEURONTIN [Suspect]
     Indication: NEURALGIA
     Dosage: 1200 MG, 1X/DAY
     Dates: start: 20090501

REACTIONS (4)
  - ANXIETY [None]
  - ASTHENIA [None]
  - MUSCULAR WEAKNESS [None]
  - SPINAL COLUMN STENOSIS [None]
